FAERS Safety Report 4895589-2 (Version None)
Quarter: 2006Q1

REPORT INFORMATION
  Report Type: 
  Country: None (occurrence: None)
  Receive Date: 20060130
  Receipt Date: 20060119
  Transmission Date: 20060701
  Serious: Yes (Hospitalization)
  Sender: FDA-Public Use
  Company Number: FR-ROCHE-432749

PATIENT
  Age: 80 Year
  Sex: Female

DRUGS (2)
  1. ROCEPHIN [Suspect]
     Indication: ERYSIPELOID
     Route: 065
     Dates: start: 20050610
  2. ALDACTAZINE [Suspect]
     Indication: ERYSIPELOID
     Route: 065
     Dates: start: 20050610

REACTIONS (1)
  - PURPURA [None]
